FAERS Safety Report 9370927 (Version 1)
Quarter: 2013Q2

REPORT INFORMATION
  Report Type: Spontaneous
  Country: CN (occurrence: CN)
  Receive Date: 20130627
  Receipt Date: 20130627
  Transmission Date: 20140414
  Serious: Yes (Hospitalization, Other)
  Sender: FDA-Public Use
  Company Number: CN-PAR PHARMACEUTICAL, INC-2013SCPR005976

PATIENT
  Sex: 0

DRUGS (2)
  1. OLANZAPINE [Suspect]
     Indication: MAJOR DEPRESSION
     Dosage: 10 MG, / DAY
     Route: 065
     Dates: end: 201208
  2. OLANZAPINE [Suspect]
     Dosage: 20 MG, UNKNOWN
     Route: 065
     Dates: start: 201208, end: 201208

REACTIONS (2)
  - Tubulointerstitial nephritis [Recovered/Resolved]
  - Depression [Unknown]
